FAERS Safety Report 7346012-X (Version None)
Quarter: 2011Q1

REPORT INFORMATION
  Report Type: 
  Country: None (occurrence: None)
  Receive Date: 20110311
  Receipt Date: 20110225
  Transmission Date: 20110831
  Serious: Yes (Hospitalization)
  Sender: FDA-Public Use
  Company Number: JP-RANBAXY-2011RR-41798

PATIENT
  Age: 37 Year
  Sex: Male

DRUGS (13)
  1. CARBAMAZEPINE [Concomitant]
     Indication: DEPRESSION
  2. RISPERDONE [Concomitant]
     Indication: DEPRESSION
  3. LEVOMEPROMAZINE [Concomitant]
     Indication: DEPRESSION
  4. CIPROFLOXACIN HYDROCHLORIDE [Concomitant]
  5. FLUNITRAZEPAM [Concomitant]
     Indication: DEPRESSION
  6. SERRAPEPTASE [Concomitant]
  7. DIMEMORFAN PHOSPHATE [Concomitant]
  8. BIPERIDEN HYDROCHLORIDE TAB [Concomitant]
     Indication: DEPRESSION
  9. DICLOFENAC [Concomitant]
  10. QUETIAPINE FUMARATE [Concomitant]
     Indication: DEPRESSION
  11. LOXOPROFEN [Concomitant]
  12. MIGRENIN [Concomitant]
  13. PARACETAMOL [Suspect]
     Indication: OROPHARYNGEAL PAIN
     Dosage: UNK

REACTIONS (1)
  - TOXIC EPIDERMAL NECROLYSIS [None]
